FAERS Safety Report 24883648 (Version 1)
Quarter: 2025Q1

REPORT INFORMATION
  Report Type: Spontaneous
  Country: US (occurrence: None)
  Receive Date: 20250124
  Receipt Date: 20250124
  Transmission Date: 20250408
  Serious: No
  Sender: FDA-CTU
  Company Number: None

PATIENT

DRUGS (2)
  1. IMITREX [Suspect]
     Active Substance: SUMATRIPTAN SUCCINATE
  2. FROVA [Suspect]
     Active Substance: FROVATRIPTAN SUCCINATE

REACTIONS (2)
  - Treatment failure [None]
  - Drug ineffective [None]

NARRATIVE: CASE EVENT DATE: 20250123
